FAERS Safety Report 20349088 (Version 2)
Quarter: 2022Q1

REPORT INFORMATION
  Report Type: Spontaneous
  Country: US (occurrence: US)
  Receive Date: 20220119
  Receipt Date: 20220221
  Transmission Date: 20220424
  Serious: No
  Sender: FDA-Public Use
  Company Number: US-GSKCCFUS-Case-01267778_AE-74126

PATIENT
  Sex: Male

DRUGS (1)
  1. FLOVENT HFA [Suspect]
     Active Substance: FLUTICASONE PROPIONATE
     Indication: Product used for unknown indication
     Dosage: UNK, 220MCG INH 134A DC 120D

REACTIONS (4)
  - Cough [Unknown]
  - Throat irritation [Unknown]
  - Drug ineffective [Unknown]
  - Product complaint [Unknown]
